FAERS Safety Report 13368270 (Version 2)
Quarter: 2017Q2

REPORT INFORMATION
  Report Type: Spontaneous
  Country: ES (occurrence: ES)
  Receive Date: 20170324
  Receipt Date: 20170406
  Transmission Date: 20170830
  Serious: Yes (Other)
  Sender: FDA-Public Use
  Company Number: ES-CONCORDIA PHARMACEUTICALS INC.-E2B_00008077

PATIENT
  Age: 48 Year
  Sex: Male

DRUGS (6)
  1. PREDNISONE. [Concomitant]
     Active Substance: PREDNISONE
     Dosage: DOSE DOWN-TITRATED
     Route: 065
  2. ZONEGRAN [Suspect]
     Active Substance: ZONISAMIDE
     Indication: MIGRAINE
     Route: 048
     Dates: start: 20170301, end: 201703
  3. MANIDON [Concomitant]
     Active Substance: VERAPAMIL HYDROCHLORIDE
     Indication: MIGRAINE
     Route: 065
  4. HIBOR [Concomitant]
     Active Substance: BEMIPARIN SODIUM
     Indication: DEEP VEIN THROMBOSIS
     Dosage: 10,000 IU
     Route: 058
  5. PREDNISONE. [Concomitant]
     Active Substance: PREDNISONE
     Dosage: 10 MG
     Route: 065
  6. PREDNISONE. [Concomitant]
     Active Substance: PREDNISONE
     Indication: MIGRAINE
     Dosage: 60 MG
     Route: 065
     Dates: start: 20161026

REACTIONS (1)
  - Hypersensitivity vasculitis [Unknown]
